FAERS Safety Report 25471745 (Version 1)
Quarter: 2025Q2

REPORT INFORMATION
  Report Type: Spontaneous
  Country: DE (occurrence: DE)
  Receive Date: 20250624
  Receipt Date: 20250624
  Transmission Date: 20250716
  Serious: Yes (Hospitalization)
  Sender: BIOCON
  Company Number: DE-DCGMA-25205238

PATIENT
  Sex: Male
  Weight: 82 kg

DRUGS (1)
  1. ROSUVASTATIN [Suspect]
     Active Substance: ROSUVASTATIN
     Indication: Hyperlipidaemia
     Route: 048

REACTIONS (2)
  - Nephrolithiasis [Recovered/Resolved]
  - Myalgia [Recovered/Resolved]
